FAERS Safety Report 15127349 (Version 2)
Quarter: 2018Q3

REPORT INFORMATION
  Report Type: Spontaneous
  Country: JP (occurrence: JP)
  Receive Date: 20180710
  Receipt Date: 20180806
  Transmission Date: 20181010
  Serious: Yes (Other)
  Sender: FDA-Public Use
  Company Number: JP-CELGENEUS-JPN-20180605222

PATIENT
  Age: 8 Decade
  Sex: Female

DRUGS (2)
  1. OTEZLA [Suspect]
     Active Substance: APREMILAST
     Indication: PSORIASIS
     Route: 048
     Dates: start: 201710
  2. OTEZLA [Suspect]
     Active Substance: APREMILAST
     Dosage: MAINTENANCE DOSE
     Route: 048

REACTIONS (1)
  - Lymphoma [Unknown]
